FAERS Safety Report 17452377 (Version 1)
Quarter: 2020Q1

REPORT INFORMATION
  Report Type: Report from Study
  Country: US (occurrence: US)
  Receive Date: 20200224
  Receipt Date: 20200224
  Transmission Date: 20200409
  Serious: Yes (Other)
  Sender: FDA-Public Use
  Company Number: US-BRACCO-2020US00860

PATIENT

DRUGS (1)
  1. E-Z GAS [Suspect]
     Active Substance: CITRIC ACID MONOHYDRATE\DIMETHICONE\SODIUM BICARBONATE
     Indication: THERAPEUTIC PROCEDURE

REACTIONS (2)
  - Mallory-Weiss syndrome [Unknown]
  - Off label use [Unknown]
